FAERS Safety Report 18399122 (Version 1)
Quarter: 2020Q4

REPORT INFORMATION
  Report Type: Spontaneous
  Country: US (occurrence: US)
  Receive Date: 20201010
  Receipt Date: 20201010
  Transmission Date: 20210114
  Serious: Yes (Other)
  Sender: FDA-Public Use
  Company Number: None

PATIENT
  Age: 35 Year
  Sex: Female

DRUGS (1)
  1. ESOMEPRAZOLE MAGNESIUM DR [Suspect]
     Active Substance: ESOMEPRAZOLE MAGNESIUM
     Indication: GASTROOESOPHAGEAL REFLUX DISEASE
     Dosage: ?          QUANTITY:60 CAPSULE(S);?
     Route: 048
     Dates: start: 20200923, end: 20201005

REACTIONS (7)
  - Agitation [None]
  - Pain [None]
  - Affect lability [None]
  - Depressed mood [None]
  - Abdominal discomfort [None]
  - Insomnia [None]
  - Crying [None]

NARRATIVE: CASE EVENT DATE: 20200923
